FAERS Safety Report 7945974-7 (Version None)
Quarter: 2011Q4

REPORT INFORMATION
  Report Type: 
  Country: None (occurrence: None)
  Receive Date: 20111123
  Receipt Date: 20111115
  Transmission Date: 20120403
  Serious: Yes (Life-Threatening)
  Sender: FDA-Public Use
  Company Number: 2011SP040800

PATIENT
  Age: 36 Year
  Sex: Female

DRUGS (2)
  1. DIPROPHOS (BETAMETHASONE SODIUM PHOSPHATE/ DIPROPIONATE/ 00582101/ ) [Suspect]
     Indication: CARPAL TUNNEL SYNDROME
     Dosage: 1 DF;ONCE;SC
     Route: 058
     Dates: start: 20100901, end: 20100901
  2. XYLONEURAL [Concomitant]

REACTIONS (1)
  - ANAPHYLACTIC REACTION [None]
